FAERS Safety Report 4801701-3 (Version None)
Quarter: 2005Q4

REPORT INFORMATION
  Report Type: 
  Country: None (occurrence: None)
  Receive Date: 20051018
  Receipt Date: 20051013
  Transmission Date: 20060501
  Serious: Yes (Hospitalization)
  Sender: FDA-Public Use
  Company Number: 419316

PATIENT
  Age: 68 Year
  Sex: Male

DRUGS (11)
  1. CARVEDILOL [Suspect]
     Indication: CARDIAC FAILURE
     Dosage: 1.25MG PER DAY
     Route: 048
     Dates: start: 20041018
  2. LASIX [Suspect]
  3. FRANDOL [Suspect]
  4. COMELIAN [Concomitant]
  5. NITRODERM [Concomitant]
  6. ALDACTONE [Concomitant]
  7. ZANTAC [Concomitant]
  8. BASEN [Concomitant]
  9. WARFARIN [Concomitant]
  10. ASPENON [Concomitant]
  11. AMARYL [Concomitant]

REACTIONS (6)
  - ASTHENIA [None]
  - DIARRHOEA [None]
  - DIZZINESS [None]
  - ENTERITIS INFECTIOUS [None]
  - ORTHOSTATIC HYPOTENSION [None]
  - SYNCOPE [None]
